FAERS Safety Report 5256254-5 (Version None)
Quarter: 2007Q1

REPORT INFORMATION
  Report Type: 
  Country: None (occurrence: None)
  Receive Date: 20070302
  Receipt Date: 20070302
  Transmission Date: 20070707
  Serious: Yes (Other)
  Sender: FDA-Public Use
  Company Number: None

PATIENT
  Sex: Male
  Weight: 48.4 kg

DRUGS (2)
  1. XOLAIR [Suspect]
     Indication: ASTHMA
     Dosage: 300 MG EVERY 4 WEEKS SQ
     Route: 058
     Dates: start: 20070108, end: 20070108
  2. XOLAIR [Suspect]
     Indication: ASTHMA
     Dosage: 300 MG EVERY 4 WEEKS SQ
     Route: 058
     Dates: start: 20070207, end: 20070207

REACTIONS (4)
  - RASH PAPULAR [None]
  - RASH PRURITIC [None]
  - SCAB [None]
  - URTICARIA [None]
